FAERS Safety Report 4755649-3 (Version None)
Quarter: 2005Q3

REPORT INFORMATION
  Report Type: 
  Country: None (occurrence: None)
  Receive Date: 20050830
  Receipt Date: 20050614
  Transmission Date: 20060218
  Serious: Yes (Hospitalization)
  Sender: FDA-Public Use
  Company Number: US-BRISTOL-MYERS SQUIBB COMPANY-13003140

PATIENT
  Age: 30 Year
  Sex: Male
  Weight: 83 kg

DRUGS (5)
  1. ABILIFY [Suspect]
     Indication: BIPOLAR DISORDER
     Route: 048
     Dates: start: 20050613, end: 20050614
  2. LEVOTHYROXINE SODIUM [Suspect]
  3. RISPERDAL [Suspect]
  4. LITHIUM CARBONATE [Suspect]
  5. SERTRALINE HCL [Suspect]

REACTIONS (3)
  - OVERDOSE [None]
  - SOMNOLENCE [None]
  - SUICIDE ATTEMPT [None]
